FAERS Safety Report 23530120 (Version 1)
Quarter: 2024Q1

REPORT INFORMATION
  Report Type: Spontaneous
  Country: IT (occurrence: IT)
  Receive Date: 20240216
  Receipt Date: 20240216
  Transmission Date: 20240409
  Serious: Yes (Hospitalization, Other)
  Sender: FDA-Public Use
  Company Number: None

PATIENT
  Age: 71 Year
  Sex: Male

DRUGS (7)
  1. CISPLATIN [Suspect]
     Active Substance: CISPLATIN
     Indication: Product used for unknown indication
     Dosage: 151.2 MILLIGRAM, EVERY 21 DAYS
     Dates: start: 20230328
  2. FLUOROURACIL [Suspect]
     Active Substance: FLUOROURACIL
     Indication: Product used for unknown indication
     Dosage: 800 MG/SQ. METER, EVERY 21 DAYS
     Dates: start: 20230328
  3. TISLELIZUMAB [Suspect]
     Active Substance: TISLELIZUMAB
     Indication: Adenocarcinoma gastric
     Dosage: 200 MILLIGRAM, EVERY 21 DAYS
     Dates: start: 20230328
  4. PANTOPRAZOLE [Concomitant]
     Active Substance: PANTOPRAZOLE
     Indication: Product used for unknown indication
     Dates: start: 20230321
  5. POLYETHYLENE GLYCOLS [Concomitant]
     Active Substance: POLYETHYLENE GLYCOLS
     Indication: Product used for unknown indication
     Dates: start: 20230330, end: 20230401
  6. DEXAMETHASONE [Concomitant]
     Active Substance: DEXAMETHASONE
     Indication: Product used for unknown indication
     Dates: start: 20230329, end: 20230430
  7. METOCLOPRAMIDE [Concomitant]
     Active Substance: METOCLOPRAMIDE
     Indication: Product used for unknown indication
     Dates: start: 20230328, end: 20230401

REACTIONS (19)
  - Blood magnesium decreased [Unknown]
  - Blood phosphorus decreased [Unknown]
  - Microcytic anaemia [Unknown]
  - Albumin urine present [Unknown]
  - Leukocytosis [Unknown]
  - White blood cell count increased [Unknown]
  - Thrombocytopenia [Unknown]
  - Bladder sphincter atony [Unknown]
  - Red blood cell count decreased [Unknown]
  - Blood creatinine increased [Unknown]
  - Transaminases abnormal [Unknown]
  - C-reactive protein increased [Unknown]
  - Diarrhoea [Unknown]
  - Blood potassium decreased [Unknown]
  - Clostridium difficile infection [Unknown]
  - Haemoglobin decreased [Unknown]
  - Syncope [Unknown]
  - Acute kidney injury [Recovered/Resolved]
  - Platelet count decreased [Unknown]

NARRATIVE: CASE EVENT DATE: 20230404
